FAERS Safety Report 15287040 (Version 3)
Quarter: 2018Q4

REPORT INFORMATION
  Report Type: Report from Study
  Country: None (occurrence: CH)
  Receive Date: 20180817
  Receipt Date: 20181116
  Transmission Date: 20190204
  Serious: Yes (Death, Hospitalization)
  Sender: FDA-Public Use
  Company Number: CH-ABBVIE-18S-151-2449096-00

PATIENT
  Sex: Female

DRUGS (4)
  1. DUODOPA [Suspect]
     Active Substance: CARBIDOPA\LEVODOPA
     Dosage: 1 CASSETTE/DAY
     Route: 050
     Dates: start: 20120611, end: 20170919
  2. DUROGESIC [Concomitant]
     Active Substance: FENTANYL
     Indication: PRODUCT USED FOR UNKNOWN INDICATION
  3. DUODOPA [Suspect]
     Active Substance: CARBIDOPA\LEVODOPA
     Indication: PARKINSON^S DISEASE
     Dosage: MD 2.5ML, CRDAY 2.4ML/H,CRNIGHT 1ML/H, ED 0.5ML, 1 CASSETTE PER DAY
     Route: 050
     Dates: start: 20170919, end: 20180809
  4. DUODOPA [Suspect]
     Active Substance: CARBIDOPA\LEVODOPA
     Dosage: RUN IN THE MORNING FOR 2HOURS AND IN THE EVENING FOR 4HOURS
     Route: 050

REACTIONS (6)
  - Arthritis [Unknown]
  - Pain [Unknown]
  - General physical health deterioration [Fatal]
  - Limb deformity [Unknown]
  - Osteitis [Unknown]
  - Musculoskeletal stiffness [Unknown]
